FAERS Safety Report 8238042-0 (Version None)
Quarter: 2012Q1

REPORT INFORMATION
  Report Type: 
  Country: None (occurrence: None)
  Receive Date: 20120327
  Receipt Date: 20120320
  Transmission Date: 20120608
  Serious: Yes (Other)
  Sender: FDA-Public Use
  Company Number: US-GLAXOSMITHKLINE-A0949533A

PATIENT
  Age: 64 Year
  Sex: Male
  Weight: 94.1 kg

DRUGS (1)
  1. VOTRIENT [Suspect]
     Indication: PRODUCT USED FOR UNKNOWN INDICATION
     Route: 048

REACTIONS (4)
  - COUGH [None]
  - BRONCHOPULMONARY ASPERGILLOSIS [None]
  - COMPUTERISED TOMOGRAM ABNORMAL [None]
  - POSITRON EMISSION TOMOGRAM ABNORMAL [None]
